FAERS Safety Report 6431176-2 (Version None)
Quarter: 2009Q4

REPORT INFORMATION
  Report Type: 
  Country: None (occurrence: None)
  Receive Date: 20091105
  Receipt Date: 20091105
  Transmission Date: 20100525
  Serious: Yes (Other)
  Sender: FDA-Public Use
  Company Number: None

PATIENT
  Sex: Female
  Weight: 18.1439 kg

DRUGS (2)
  1. SINGULAIR [Suspect]
     Indication: ASTHMA EXERCISE INDUCED
     Dosage: ONCE AT BEDTIME CHEWABLE
     Dates: start: 20080501, end: 20080810
  2. SINGULAIR [Suspect]
     Indication: SEASONAL ALLERGY
     Dosage: ONCE AT BEDTIME CHEWABLE
     Dates: start: 20080501, end: 20080810

REACTIONS (13)
  - ABNORMAL BEHAVIOUR [None]
  - ABNORMAL DREAMS [None]
  - AGGRESSION [None]
  - AGITATION [None]
  - ANXIETY [None]
  - CRYING [None]
  - DISSOCIATION [None]
  - FEAR [None]
  - HALLUCINATION [None]
  - HYPERACUSIS [None]
  - INSOMNIA [None]
  - MOOD ALTERED [None]
  - TREMOR [None]
